FAERS Safety Report 16289439 (Version 1)
Quarter: 2019Q2

REPORT INFORMATION
  Report Type: Spontaneous
  Country: US (occurrence: US)
  Receive Date: 20190403
  Receipt Date: 20190403
  Transmission Date: 20190711
  Serious: Yes (Hospitalization)
  Sender: FDA-Public Use
  Company Number: None

PATIENT
  Age: 64 Year
  Sex: Male

DRUGS (8)
  1. SILDENAFIL. [Suspect]
     Active Substance: SILDENAFIL
     Indication: PULMONARY ARTERIAL HYPERTENSION
     Route: 048
     Dates: start: 20180801
  2. CEFDINIR. [Concomitant]
     Active Substance: CEFDINIR
  3. WARFARIN [Concomitant]
     Active Substance: WARFARIN
  4. CARTIA [Concomitant]
  5. FUROSEMIDE. [Concomitant]
     Active Substance: FUROSEMIDE
  6. DOXYCYCL [Concomitant]
  7. AMIODARONE [Concomitant]
     Active Substance: AMIODARONE
  8. POT CHLOR [Concomitant]

REACTIONS (1)
  - Asthenia [None]

NARRATIVE: CASE EVENT DATE: 20190321
